FAERS Safety Report 13292078 (Version 3)
Quarter: 2018Q1

REPORT INFORMATION
  Report Type: Report from Study
  Country: FR (occurrence: FR)
  Receive Date: 20170303
  Receipt Date: 20180328
  Transmission Date: 20180508
  Serious: Yes (Hospitalization, Other)
  Sender: FDA-Public Use
  Company Number: FR-BIOVITRUM-2008FR0189

PATIENT
  Age: 12 Year
  Sex: Male
  Weight: 27 kg

DRUGS (10)
  1. ORFADIN [Suspect]
     Active Substance: NITISINONE
     Dosage: 0.67 MG/KG
     Dates: start: 20100907
  2. ORFADIN [Suspect]
     Active Substance: NITISINONE
     Indication: TYROSINAEMIA
     Dosage: 0.3 MG/KG
     Dates: start: 20010710
  3. ORFADIN [Suspect]
     Active Substance: NITISINONE
     Dosage: 0.56 MG/KG
     Dates: start: 20090929
  4. ORFADIN [Suspect]
     Active Substance: NITISINONE
     Dosage: 0.68 MG/KG
     Dates: start: 20150526, end: 20160526
  5. ORFADIN [Suspect]
     Active Substance: NITISINONE
     Dosage: 0.68 MG/KG
     Dates: start: 20160523, end: 20161213
  6. ORFADIN [Suspect]
     Active Substance: NITISINONE
     Dosage: 0.77 MG/KG
     Dates: start: 20161213
  7. ORFADIN [Suspect]
     Active Substance: NITISINONE
     Dosage: 0.69 MG/KG
     Dates: start: 20130405, end: 20140929
  8. VITAMIN K [Suspect]
     Active Substance: PHYTONADIONE
     Indication: HEPATIC FIBROSIS
     Dosage: 10 MG TWICE A MONTH
     Dates: start: 20120515
  9. ORFADIN [Suspect]
     Active Substance: NITISINONE
     Dosage: 0.63 MG/KG
     Dates: start: 20140929, end: 20150526
  10. ORFADIN [Suspect]
     Active Substance: NITISINONE
     Dosage: 0.69-0.65 MG/KG
     Dates: start: 20110919, end: 20130405

REACTIONS (6)
  - Alpha 1 foetoprotein increased [Recovered/Resolved]
  - Hepatic cancer [Recovered/Resolved]
  - Coagulation factor V level decreased [Recovered/Resolved]
  - Drug ineffective [Recovered/Resolved]
  - Prothrombin level decreased [Recovered/Resolved]
  - Hepatic function abnormal [Recovered/Resolved]

NARRATIVE: CASE EVENT DATE: 2008
